FAERS Safety Report 4611761-0 (Version None)
Quarter: 2005Q1

REPORT INFORMATION
  Report Type: 
  Country: None (occurrence: None)
  Receive Date: 20050308
  Receipt Date: 20041213
  Transmission Date: 20050727
  Serious: Yes (Other)
  Sender: FDA-Public Use
  Company Number: 2004UW24995

PATIENT
  Sex: Male

DRUGS (4)
  1. CRESTOR [Suspect]
     Dosage: 10 MG PO
     Route: 048
  2. CRESTOR [Suspect]
     Dosage: 20 MG PO
     Route: 048
     Dates: start: 20040701
  3. CELEBREX [Concomitant]
  4. MAXZIDE [Concomitant]

REACTIONS (1)
  - BLOOD CREATININE INCREASED [None]
